FAERS Safety Report 14037655 (Version 3)
Quarter: 2017Q4

REPORT INFORMATION
  Report Type: Spontaneous
  Country: US (occurrence: US)
  Receive Date: 20171004
  Receipt Date: 20171212
  Transmission Date: 20180321
  Serious: No
  Sender: FDA-Public Use
  Company Number: US-PFIZER INC-2017423938

PATIENT
  Age: 56 Year
  Sex: Male

DRUGS (3)
  1. OXYCODONE [Concomitant]
     Active Substance: OXYCODONE
     Indication: GASTRECTOMY
     Dosage: 10 MG, UNK (TWO 5 MG, DEPENDS ON TIME WHEN HE EATS; MAY TAKE 2-3 TIMES A DAY)
     Dates: start: 2016
  2. IBRANCE [Suspect]
     Active Substance: PALBOCICLIB
     Indication: LIPOSARCOMA
     Dosage: 125 MG, CYCLIC (125 MG CAPSULE ONCE A DAY FOR 21 DAYS)
     Dates: start: 20170910
  3. OXYCODONE [Concomitant]
     Active Substance: OXYCODONE
     Indication: ABDOMINAL PAIN UPPER

REACTIONS (6)
  - Neoplasm progression [Unknown]
  - Abdominal pain [Unknown]
  - Scrotal pain [Not Recovered/Not Resolved]
  - Body height decreased [Unknown]
  - Product use in unapproved indication [Unknown]
  - Testis discomfort [Not Recovered/Not Resolved]

NARRATIVE: CASE EVENT DATE: 2017
